FAERS Safety Report 11151222 (Version 1)
Quarter: 2015Q2

REPORT INFORMATION
  Report Type: Spontaneous
  Country: US (occurrence: US)
  Receive Date: 20150601
  Receipt Date: 20150601
  Transmission Date: 20150821
  Serious: No
  Sender: FDA-Public Use
  Company Number: US-BAYER-2015-263334

PATIENT
  Age: 51 Year
  Sex: Female

DRUGS (1)
  1. ANGELIQ [Suspect]
     Active Substance: DROSPIRENONE\ESTRADIOL
     Indication: HOT FLUSH
     Dosage: 1 DF, QD
     Route: 048
     Dates: start: 20150330

REACTIONS (4)
  - Mood altered [None]
  - Fluid retention [None]
  - Abdominal pain [None]
  - Breast pain [None]

NARRATIVE: CASE EVENT DATE: 20150420
